FAERS Safety Report 7436800-3 (Version None)
Quarter: 2011Q2

REPORT INFORMATION
  Report Type: 
  Country: None (occurrence: None)
  Receive Date: 20110426
  Receipt Date: 20110423
  Transmission Date: 20111010
  Serious: No
  Sender: FDA-Public Use
  Company Number: US-PFIZER INC-2011088141

PATIENT
  Sex: Female

DRUGS (1)
  1. PEDIATRIC ADVIL [Suspect]
     Dosage: UNK
     Dates: start: 20110423

REACTIONS (2)
  - ABNORMAL BEHAVIOUR [None]
  - POOR QUALITY SLEEP [None]
